FAERS Safety Report 7766823-6 (Version None)
Quarter: 2011Q3

REPORT INFORMATION
  Report Type: 
  Country: None (occurrence: None)
  Receive Date: 20110922
  Receipt Date: 20101206
  Transmission Date: 20111222
  Serious: No
  Sender: FDA-Public Use
  Company Number: US-ASTRAZENECA-2010SE57793

PATIENT
  Age: 27 Year
  Sex: Female
  Weight: 65.8 kg

DRUGS (3)
  1. SEROQUEL XR [Suspect]
     Indication: BIPOLAR DISORDER
     Route: 048
     Dates: start: 20101001
  2. CELEXA [Concomitant]
  3. SEROQUEL XR [Suspect]
     Route: 048

REACTIONS (3)
  - MUSCLE SPASMS [None]
  - DYSKINESIA [None]
  - DISTURBANCE IN ATTENTION [None]
